FAERS Safety Report 4912214-2 (Version None)
Quarter: 2006Q1

REPORT INFORMATION
  Report Type: 
  Country: None (occurrence: None)
  Receive Date: 20060215
  Receipt Date: 20051007
  Transmission Date: 20060701
  Serious: Yes (Other)
  Sender: FDA-Public Use
  Company Number: US-GLAXOSMITHKLINE-A0577532A

PATIENT
  Age: 36 Year
  Sex: Female
  Weight: 61.4 kg

DRUGS (2)
  1. VALTREX [Suspect]
     Dosage: 1G THREE TIMES PER DAY
     Route: 048
     Dates: start: 20050927, end: 20050928
  2. TOPICAL ACYCLOVIR [Concomitant]

REACTIONS (1)
  - URTICARIA [None]
